FAERS Safety Report 16053895 (Version 3)
Quarter: 2019Q4

REPORT INFORMATION
  Report Type: Spontaneous
  Country: US (occurrence: US)
  Receive Date: 20190308
  Receipt Date: 20191029
  Transmission Date: 20200122
  Serious: Yes (Other)
  Sender: FDA-Public Use
  Company Number: US-ASTRAZENECA-2019SE10630

PATIENT
  Age: 17972 Day
  Sex: Male
  Weight: 100.7 kg

DRUGS (24)
  1. SIMVASTATIN. [Concomitant]
     Active Substance: SIMVASTATIN
  2. ALLOPURINOL. [Concomitant]
     Active Substance: ALLOPURINOL
  3. LISINOPRIL. [Concomitant]
     Active Substance: LISINOPRIL
  4. COLCHICINE. [Concomitant]
     Active Substance: COLCHICINE
  5. GUAIFENESIN. [Concomitant]
     Active Substance: GUAIFENESIN
  6. VICODIN [Concomitant]
     Active Substance: ACETAMINOPHEN\HYDROCODONE BITARTRATE
  7. AMOXICILLIN. [Concomitant]
     Active Substance: AMOXICILLIN
  8. ZANTAC [Concomitant]
     Active Substance: RANITIDINE HYDROCHLORIDE
  9. CIPROFLOXACIN. [Concomitant]
     Active Substance: CIPROFLOXACIN
  10. NEXIUM [Suspect]
     Active Substance: ESOMEPRAZOLE MAGNESIUM
     Route: 048
     Dates: start: 20151020
  11. RANITIDINE. [Concomitant]
     Active Substance: RANITIDINE
  12. CLONIDINE. [Concomitant]
     Active Substance: CLONIDINE
  13. PROAIR HFA [Concomitant]
     Active Substance: ALBUTEROL SULFATE
  14. MEDROL [Concomitant]
     Active Substance: METHYLPREDNISOLONE
  15. PREVACID [Concomitant]
     Active Substance: LANSOPRAZOLE
  16. NEXIUM [Suspect]
     Active Substance: ESOMEPRAZOLE MAGNESIUM
     Route: 048
  17. IBUPROFEN. [Concomitant]
     Active Substance: IBUPROFEN
  18. BROMFED [Concomitant]
     Active Substance: BROMPHENIRAMINE MALEATE\DEXTROMETHORPHAN HYDROBROMIDE\PSEUDOEPHEDRINE HYDROCHLORIDE
  19. TAMIFLU [Concomitant]
     Active Substance: OSELTAMIVIR PHOSPHATE
  20. NASONEX [Concomitant]
     Active Substance: MOMETASONE FUROATE
  21. NEXIUM [Suspect]
     Active Substance: ESOMEPRAZOLE MAGNESIUM
     Route: 048
     Dates: start: 20070414
  22. TRAMADOL. [Concomitant]
     Active Substance: TRAMADOL
  23. PROMETHAZINE [Concomitant]
     Active Substance: PROMETHAZINE HYDROCHLORIDE
  24. DOXYCYCLINE. [Concomitant]
     Active Substance: DOXYCYCLINE

REACTIONS (6)
  - Renal failure [Unknown]
  - Renal injury [Unknown]
  - Hyperparathyroidism secondary [Unknown]
  - Chronic kidney disease [Unknown]
  - Rebound acid hypersecretion [Unknown]
  - Acute kidney injury [Unknown]

NARRATIVE: CASE EVENT DATE: 20160910
